FAERS Safety Report 4930304-5 (Version None)
Quarter: 2006Q1

REPORT INFORMATION
  Report Type: 
  Country: None (occurrence: None)
  Receive Date: 20060118
  Receipt Date: 20050603
  Transmission Date: 20060701
  Serious: No
  Sender: FDA-Public Use
  Company Number: 2005001213

PATIENT
  Age: 66 Year
  Sex: Male

DRUGS (5)
  1. TARCEVA [Suspect]
     Indication: NON-SMALL CELL LUNG CANCER
     Dosage: 150 MG (QD), ORAL
     Route: 048
     Dates: start: 20050331
  2. ZITHROMYCIN (AZITHROMYCIN) [Concomitant]
  3. ALBUTEROL [Concomitant]
  4. OXYGEN (OXYGEN) [Concomitant]
  5. NYTOL (DIPHENHYDRAMINE HYDROCHLORIDE) [Concomitant]

REACTIONS (5)
  - ANXIETY [None]
  - COUGH [None]
  - HYPOVENTILATION [None]
  - INFECTION [None]
  - WEIGHT DECREASED [None]
